FAERS Safety Report 8441467-1 (Version None)
Quarter: 2012Q2

REPORT INFORMATION
  Report Type: 
  Country: None (occurrence: None)
  Receive Date: 20120615
  Receipt Date: 20120605
  Transmission Date: 20120825
  Serious: Yes (Death, Congenital Anomaly, Other)
  Sender: FDA-Public Use
  Company Number: TR-PERRIGO-12TR004925

PATIENT
  Sex: Female
  Weight: 1.91 kg

DRUGS (2)
  1. NAPROXEN SODIUM [Suspect]
     Indication: MATERNAL EXPOSURE DURING PREGNANCY
     Dosage: 1100 MG, QD
     Route: 064
  2. NAPROXEN SODIUM [Suspect]
     Dosage: 1100 MG, QD
     Route: 064

REACTIONS (17)
  - FOETAL HYPOKINESIA [None]
  - GENERALISED OEDEMA [None]
  - ILEAL PERFORATION [None]
  - CANDIDIASIS [None]
  - VOMITING [None]
  - RENAL APLASIA [None]
  - FOETAL EXPOSURE DURING PREGNANCY [None]
  - JOINT CONTRACTURE [None]
  - ABDOMINAL DISTENSION [None]
  - DISSEMINATED INTRAVASCULAR COAGULATION IN NEWBORN [None]
  - NEONATAL ANURIA [None]
  - ELECTROLYTE IMBALANCE [None]
  - USE OF ACCESSORY RESPIRATORY MUSCLES [None]
  - URINE OUTPUT DECREASED [None]
  - SEPSIS [None]
  - FOETAL GROWTH RESTRICTION [None]
  - ILEITIS [None]
